FAERS Safety Report 5946522-3 (Version None)
Quarter: 2008Q4

REPORT INFORMATION
  Report Type: 
  Country: None (occurrence: None)
  Receive Date: 20081110
  Receipt Date: 20081105
  Transmission Date: 20090506
  Serious: Yes (Death)
  Sender: FDA-Public Use
  Company Number: B0544221A

PATIENT
  Age: 2 Year
  Sex: Male

DRUGS (3)
  1. ALKERAN [Suspect]
     Indication: BONE MARROW TRANSPLANT
     Route: 042
  2. CARBOPLATIN [Suspect]
     Indication: BONE MARROW TRANSPLANT
  3. ETOPOSIDE [Suspect]
     Indication: BONE MARROW TRANSPLANT
     Route: 065

REACTIONS (3)
  - PULMONARY HAEMORRHAGE [None]
  - RENAL FAILURE [None]
  - VENOOCCLUSIVE LIVER DISEASE [None]
